FAERS Safety Report 8834726 (Version 1)
Quarter: 2012Q4

REPORT INFORMATION
  Report Type: 
  Country: DE (occurrence: DE)
  Receive Date: 20121010
  Receipt Date: 20121010
  Transmission Date: 20130627
  Serious: Yes (Hospitalization, Other)
  Sender: FDA-Public Use
  Company Number: DE-JNJFOC-20120909010

PATIENT

DRUGS (4)
  1. RISPERIDONE [Suspect]
     Indication: SCHIZOAFFECTIVE DISORDER
     Dosage: 25-50 mg biweekly for 2 years
     Route: 030
  2. RISPERIDONE [Suspect]
     Indication: SCHIZOPHRENIA
     Dosage: 25-50 mg biweekly for 2 years
     Route: 030
  3. UNSPECIFIED INGREDIENT [Suspect]
     Indication: SCHIZOAFFECTIVE DISORDER
     Route: 048
  4. UNSPECIFIED INGREDIENT [Suspect]
     Indication: SCHIZOPHRENIA
     Route: 048

REACTIONS (6)
  - General physical condition abnormal [Unknown]
  - Extrapyramidal disorder [Unknown]
  - Headache [Unknown]
  - Injection site induration [Unknown]
  - Injection site reaction [Unknown]
  - Injection site pain [Unknown]
